FAERS Safety Report 8110046-8 (Version None)
Quarter: 2012Q1

REPORT INFORMATION
  Report Type: 
  Country: None (occurrence: None)
  Receive Date: 20120202
  Receipt Date: 20120104
  Transmission Date: 20120608
  Serious: Yes (Death)
  Sender: FDA-Public Use
  Company Number: US-COVIDIEN/TYCO HEALTHCARE/MALLINCKRODT-T201200290

PATIENT
  Age: 17 Year
  Sex: Female

DRUGS (18)
  1. HYOSCYAMINE [Suspect]
     Route: 048
  2. HYDROCODONE BITARTRATE AND ACETAMINOPHEN [Suspect]
     Route: 048
  3. NAPROXEN [Suspect]
     Route: 048
  4. MONTELUKAST [Suspect]
     Route: 048
  5. DEXTROMETHORPHAN [Suspect]
     Route: 048
  6. PSEUDOEPHEDRINE HCL [Suspect]
     Route: 048
  7. HALOPERIDOL [Suspect]
     Route: 048
  8. ROSUVASTATIN [Suspect]
     Route: 048
  9. FLUOXETINE [Suspect]
     Route: 048
  10. METHYLIN [Suspect]
     Route: 048
  11. ETHANOL [Suspect]
     Route: 048
  12. IBUPROFEN [Suspect]
     Route: 048
  13. GUAIFENESIN [Suspect]
     Route: 048
  14. LOPERAMIDE HCL [Suspect]
     Route: 048
  15. PHENOL [Suspect]
     Route: 048
  16. LAXATIVES [Suspect]
     Route: 048
  17. CITALOPRAM HYDROBROMIDE [Suspect]
     Route: 048
  18. MAGNESIUM [Suspect]
     Route: 048

REACTIONS (1)
  - COMPLETED SUICIDE [None]
